FAERS Safety Report 22780062 (Version 6)
Quarter: 2023Q4

REPORT INFORMATION
  Report Type: Report from Study
  Country: ES (occurrence: ES)
  Receive Date: 20230803
  Receipt Date: 20231011
  Transmission Date: 20240110
  Serious: Yes (Hospitalization)
  Sender: FDA-Public Use
  Company Number: ES-JNJFOC-20230759358

PATIENT
  Age: 78 Year
  Sex: Female
  Weight: 77.8 kg

DRUGS (10)
  1. DARATUMUMAB [Suspect]
     Active Substance: DARATUMUMAB
     Indication: Plasma cell myeloma
     Dosage: LAST ADMINISTERED ON 18-JUL-2023.
     Route: 058
     Dates: start: 20230711
  2. IBERDOMIDE [Suspect]
     Active Substance: IBERDOMIDE
     Indication: Plasma cell myeloma
     Dosage: LAST ADMINISTERED ON 25-JUL-2023
     Route: 048
     Dates: start: 20230711
  3. DEXAMETHASONE [Suspect]
     Active Substance: DEXAMETHASONE
     Indication: Plasma cell myeloma
     Dosage: LAST ADMINISTERED ON 18-JUL-2023
     Route: 048
     Dates: start: 20230711
  4. ACYCLOVIR [Concomitant]
     Active Substance: ACYCLOVIR
     Indication: Prophylaxis
     Route: 048
     Dates: start: 20230721
  5. AMLODIPINE [Concomitant]
     Active Substance: AMLODIPINE BESYLATE
     Indication: Hypertension
     Route: 048
     Dates: start: 20230721
  6. ALLOPURINOL [Concomitant]
     Active Substance: ALLOPURINOL
     Indication: Plasma cell myeloma
     Route: 048
     Dates: start: 20230721
  7. FENTANYL [Concomitant]
     Active Substance: FENTANYL
     Indication: Pain
     Route: 023
     Dates: start: 20230721
  8. FUROSEMIDE [Concomitant]
     Active Substance: FUROSEMIDE
     Indication: Hypertension
     Route: 048
     Dates: start: 20230721
  9. MICAFUNGIN [Concomitant]
     Active Substance: MICAFUNGIN SODIUM
     Indication: Candida infection
     Route: 065
     Dates: start: 20230824
  10. CALCIUM [Concomitant]
     Active Substance: CALCIUM
     Indication: Hypocalcaemia
     Route: 042

REACTIONS (3)
  - Febrile neutropenia [Not Recovered/Not Resolved]
  - Vomiting [Recovered/Resolved]
  - Urinary tract infection [Recovered/Resolved]

NARRATIVE: CASE EVENT DATE: 20230726
